FAERS Safety Report 6686185-5 (Version None)
Quarter: 2010Q2

REPORT INFORMATION
  Report Type: 
  Country: None (occurrence: None)
  Receive Date: 20100419
  Receipt Date: 20100407
  Transmission Date: 20101027
  Serious: Yes (Hospitalization)
  Sender: FDA-Public Use
  Company Number: GB-B.I. PHARMACEUTICALS,INC./RIDGEFIELD-2010-UK-00121UK

PATIENT
  Sex: Female

DRUGS (7)
  1. VIRAMUNE [Suspect]
     Indication: HIV TEST POSITIVE
     Dosage: 200 MG
     Route: 048
     Dates: start: 20091105, end: 20091116
  2. VIRAMUNE [Suspect]
     Dosage: 400 MG
     Route: 048
     Dates: start: 20091117, end: 20091130
  3. EFAVIRENZ [Suspect]
     Dosage: UNSPECIFIED HIGH DOSE.
     Dates: end: 20091117
  4. SWINE FLU JAB [Suspect]
     Dosage: JAB.
     Dates: start: 20091126, end: 20091126
  5. TRUVADA [Concomitant]
     Indication: HIV INFECTION
     Dosage: ONE ONCE DAILY.
     Route: 048
     Dates: start: 20090101
  6. GAVISCON [Concomitant]
     Indication: GASTRITIS
     Dosage: 20 ML
     Route: 048
     Dates: start: 20090401
  7. ADCAL D3 [Concomitant]
     Indication: VITAMIN D DEFICIENCY
     Dosage: ONE ONCE DAILY.
     Route: 048
     Dates: start: 20090501

REACTIONS (5)
  - ABDOMINAL DISTENSION [None]
  - ABDOMINAL PAIN [None]
  - CONSTIPATION [None]
  - HYPERSENSITIVITY [None]
  - INJECTION SITE PAIN [None]
